FAERS Safety Report 14029437 (Version 1)
Quarter: 2017Q4

REPORT INFORMATION
  Report Type: Spontaneous
  Country: US (occurrence: US)
  Receive Date: 20171002
  Receipt Date: 20171002
  Transmission Date: 20180321
  Serious: Yes (Other)
  Sender: FDA-Public Use
  Company Number: None

PATIENT
  Age: 34 Year
  Sex: Female
  Weight: 58.5 kg

DRUGS (6)
  1. PRILOSEC [Concomitant]
     Active Substance: OMEPRAZOLE MAGNESIUM
  2. GABAPENTIN. [Concomitant]
     Active Substance: GABAPENTIN
  3. HUMIRA [Suspect]
     Active Substance: ADALIMUMAB
     Indication: ANKYLOSING SPONDYLITIS
     Dosage: ?          QUANTITY:1 INJECTION(S);OTHER FREQUENCY:ONCE EVERY 2 WEEKS;?
     Route: 058
     Dates: start: 20170801, end: 20170916
  4. BUTRANS [Concomitant]
     Active Substance: BUPRENORPHINE
  5. ACYCLOVIR. [Concomitant]
     Active Substance: ACYCLOVIR
  6. OXYCODONE [Concomitant]
     Active Substance: OXYCODONE

REACTIONS (6)
  - Pain [None]
  - Weight increased [None]
  - Lupus-like syndrome [None]
  - Pruritus [None]
  - Abscess [None]
  - Cellulitis [None]

NARRATIVE: CASE EVENT DATE: 20170915
